FAERS Safety Report 13739695 (Version 1)
Quarter: 2017Q3

REPORT INFORMATION
  Report Type: Spontaneous
  Country: BR (occurrence: BR)
  Receive Date: 20170710
  Receipt Date: 20170710
  Transmission Date: 20171127
  Serious: Yes (Death)
  Sender: FDA-Public Use
  Company Number: PHHY2013BR136819

PATIENT
  Age: 94 Year
  Sex: Female
  Weight: 60 kg

DRUGS (1)
  1. HYDERGINE [Suspect]
     Active Substance: ERGOLOID MESYLATES
     Indication: PROPHYLAXIS
     Dosage: 30 DRP, (1 OR 2 TIMES A DAY OR BID)
     Route: 048

REACTIONS (1)
  - Death [Fatal]
